FAERS Safety Report 9056566 (Version 1)
Quarter: 2013Q1

REPORT INFORMATION
  Report Type: Spontaneous
  Country: IT (occurrence: IT)
  Receive Date: 20130204
  Receipt Date: 20130204
  Transmission Date: 20140127
  Serious: Yes (Hospitalization)
  Sender: FDA-Public Use
  Company Number: IT-GLAXOSMITHKLINE-B0864827A

PATIENT
  Age: 11 None
  Sex: Male

DRUGS (2)
  1. ALIFLUS [Suspect]
     Indication: ASTHMA
     Dosage: 1UD PER DAY
     Route: 055
     Dates: start: 20120930
  2. BRONCOVALEAS [Suspect]
     Indication: ASTHMA
     Dosage: 100MCG PER DAY
     Route: 055
     Dates: start: 20120930

REACTIONS (2)
  - Palpitations [Not Recovered/Not Resolved]
  - Chest pain [Not Recovered/Not Resolved]
